FAERS Safety Report 6039624-7 (Version None)
Quarter: 2009Q1

REPORT INFORMATION
  Report Type: 
  Country: None (occurrence: None)
  Receive Date: 20090116
  Receipt Date: 20090113
  Transmission Date: 20090719
  Serious: Yes (Death)
  Sender: FDA-Public Use
  Company Number: US-BRISTOL-MYERS SQUIBB COMPANY-14470322

PATIENT
  Age: 70 Year
  Sex: Female

DRUGS (6)
  1. TRAZODONE HCL [Suspect]
     Route: 048
  2. CLONAZEPAM [Suspect]
     Route: 048
  3. VENLAFAXINE HCL [Suspect]
     Route: 048
  4. RISPERIDONE [Suspect]
     Route: 048
  5. ZOLPIDEM [Suspect]
  6. ETHANOL [Suspect]
     Route: 048

REACTIONS (1)
  - COMPLETED SUICIDE [None]
